FAERS Safety Report 11137914 (Version 2)
Quarter: 2015Q3

REPORT INFORMATION
  Report Type: Spontaneous
  Country: JP (occurrence: JP)
  Receive Date: 20150526
  Receipt Date: 20150731
  Transmission Date: 20151125
  Serious: Yes (Death)
  Sender: FDA-Public Use
  Company Number: JP-MALLINCKRODT-T201502667

PATIENT
  Age: 52 Year
  Sex: Male
  Weight: 47 kg

DRUGS (7)
  1. LYRICA [Suspect]
     Active Substance: PREGABALIN
     Indication: PRODUCT USED FOR UNKNOWN INDICATION
     Dosage: 50 MG DAILY DOSE
     Route: 048
     Dates: start: 20141127, end: 20141208
  2. METHADONE [Suspect]
     Active Substance: METHADONE HYDROCHLORIDE
     Dosage: 5 MG, (10 MG DAILY DOSE)
     Route: 048
     Dates: start: 20141205, end: 20141214
  3. TAMBOCOR [Concomitant]
     Active Substance: FLECAINIDE ACETATE
     Dosage: 100 MG
     Route: 048
     Dates: start: 20141208
  4. METHADONE [Suspect]
     Active Substance: METHADONE HYDROCHLORIDE
     Dosage: 5 MG, (15 MG DAILY DOSE)
     Route: 048
     Dates: start: 20141215, end: 20141224
  5. METHADONE [Suspect]
     Active Substance: METHADONE HYDROCHLORIDE
     Indication: CANCER PAIN
     Dosage: 5 MG, (15 MG DAILY DOSE)
     Route: 048
     Dates: start: 20141204, end: 20141204
  6. OXYFAST [Concomitant]
     Active Substance: OXYCODONE
     Dosage: 0.9 - 1.05 MG, P.R.N.
     Route: 051
     Dates: start: 20141203
  7. CALONAL [Concomitant]
     Active Substance: ACETAMINOPHEN
     Dosage: 2400 MG
     Route: 048
     Dates: start: 20141117

REACTIONS (2)
  - Malignant melanoma [Fatal]
  - Somnolence [Unknown]

NARRATIVE: CASE EVENT DATE: 20141205
